FAERS Safety Report 4434084-1 (Version None)
Quarter: 2004Q3

REPORT INFORMATION
  Report Type: 
  Country: None (occurrence: None)
  Receive Date: 20040825
  Receipt Date: 20040806
  Transmission Date: 20050211
  Serious: Yes (Hospitalization, Disabling, Other)
  Sender: FDA-Public Use
  Company Number: USA040874892

PATIENT
  Sex: Female

DRUGS (1)
  1. HUMULIN R [Suspect]

REACTIONS (3)
  - BLINDNESS [None]
  - FOOT OPERATION [None]
  - PHARMACEUTICAL PRODUCT COMPLAINT [None]
